FAERS Safety Report 4765864-0 (Version None)
Quarter: 2005Q3

REPORT INFORMATION
  Report Type: 
  Country: None (occurrence: None)
  Receive Date: 20050907
  Receipt Date: 20050830
  Transmission Date: 20060218
  Serious: Yes (Hospitalization, Other)
  Sender: FDA-Public Use
  Company Number: 2005122196

PATIENT
  Age: 56 Year
  Sex: Female

DRUGS (28)
  1. LIPITOR [Suspect]
     Indication: BLOOD CHOLESTEROL INCREASED
     Dosage: 10 MG (10 MG, 1 IN 1 D)
     Dates: start: 19990101
  2. BENICAR [Concomitant]
  3. PROZAC [Concomitant]
  4. PRIMIDONE [Concomitant]
  5. ISOSORBIDE (ISOSORBIDE) [Concomitant]
  6. DIAZEPAM [Concomitant]
  7. SYNTHROID [Concomitant]
  8. SEREVENT [Concomitant]
  9. FLOVENT [Concomitant]
  10. HYDROXYZINE [Concomitant]
  11. HYDROCORTISONE [Concomitant]
  12. TESTOSTERONE [Concomitant]
  13. FOSAMAX [Concomitant]
  14. PLAVIX [Concomitant]
  15. CARTIA XT [Concomitant]
  16. PROVIGIL [Concomitant]
  17. ECOTRIN (ACETYLSALICYLIC ACID) [Concomitant]
  18. NITROGLYCERIN [Concomitant]
  19. CENTRUM SILVER (ASCORBIC ACID, CALCIUM, MINERALS NOS, RETINOL, TOCOPHE [Concomitant]
  20. CALCIUM WITH VITAMIN D (CALCIUM PHOSPHATE, CALCIUM SODIUM LACTATE, ERT [Concomitant]
  21. B50 (CHLOROPHYLLIN  SODIUM COPPER COMPLEX) [Concomitant]
  22. VITAMIN B12 [Concomitant]
  23. FOLIC ACID [Concomitant]
  24. FISH OIL (FISH OIL) [Concomitant]
  25. ALEVE [Concomitant]
  26. ANTACIDS (ANTACIDS) [Concomitant]
  27. STOOL SOFTENER (DOCUSATE SODIUM) [Concomitant]
  28. MINERAL OIL (MINERAL OIL) [Concomitant]

REACTIONS (13)
  - ATROPHY [None]
  - BALANCE DISORDER [None]
  - BLOOD CHOLESTEROL INCREASED [None]
  - BODY HEIGHT DECREASED [None]
  - CHOLECYSTITIS [None]
  - DRY SKIN [None]
  - DYSPEPSIA [None]
  - FALL [None]
  - GUILLAIN-BARRE SYNDROME [None]
  - JOINT INJURY [None]
  - MYOCARDIAL INFARCTION [None]
  - SKIN EXFOLIATION [None]
  - WEIGHT INCREASED [None]
